FAERS Safety Report 8540871-0 (Version None)
Quarter: 2012Q3

REPORT INFORMATION
  Report Type: 
  Country: None (occurrence: None)
  Receive Date: 20120726
  Receipt Date: 20120723
  Transmission Date: 20120928
  Serious: No
  Sender: FDA-Public Use
  Company Number: US-PFIZER INC-2012178858

PATIENT
  Sex: Female
  Weight: 61.224 kg

DRUGS (5)
  1. TRAMADOL HCL [Suspect]
     Indication: MYALGIA
     Dosage: UNK
  2. METFORMIN [Concomitant]
     Indication: DIABETES MELLITUS
     Dosage: 500 MG, 2X/DAY
  3. ACETYLSALICYLIC ACID SRT [Suspect]
     Indication: PAIN IN EXTREMITY
     Dosage: 325 MG, 2X/DAY
     Dates: start: 20120601
  4. TRAMADOL HCL [Suspect]
     Indication: PAIN IN EXTREMITY
  5. LYRICA [Suspect]
     Indication: DIABETIC NEUROPATHY
     Dosage: 50 MG, DAILY
     Dates: start: 20080101

REACTIONS (3)
  - DRUG INEFFECTIVE [None]
  - PAIN IN EXTREMITY [None]
  - INSOMNIA [None]
